FAERS Safety Report 5746268-0 (Version None)
Quarter: 2008Q2

REPORT INFORMATION
  Report Type: 
  Country: None (occurrence: None)
  Receive Date: 20080522
  Receipt Date: 20080509
  Transmission Date: 20081010
  Serious: Yes (Other)
  Sender: FDA-Public Use
  Company Number: PHEH2008US03760

PATIENT
  Age: 65 Year
  Sex: Female
  Weight: 65.306 kg

DRUGS (1)
  1. GLEEVEC [Suspect]
     Indication: CHRONIC MYELOID LEUKAEMIA
     Dosage: 400 MG, QD
     Route: 048
     Dates: start: 20040901

REACTIONS (3)
  - CATARACT [None]
  - MACULAR DEGENERATION [None]
  - MACULOPATHY [None]
